FAERS Safety Report 18278765 (Version 2)
Quarter: 2020Q3

REPORT INFORMATION
  Report Type: Report from Study
  Country: US (occurrence: US)
  Receive Date: 20200917
  Receipt Date: 20200921
  Transmission Date: 20201103
  Serious: Yes (Other)
  Sender: FDA-Public Use
  Company Number: US-MYLANLABS-2020M1078923

PATIENT
  Sex: Male
  Weight: 109 kg

DRUGS (1)
  1. GLATIRAMER ACETATE INJECTION [Suspect]
     Active Substance: GLATIRAMER ACETATE
     Indication: MULTIPLE SCLEROSIS
     Dosage: 40 MILLIGRAM, 3XW
     Route: 058
     Dates: start: 2019

REACTIONS (7)
  - Hypoaesthesia [Unknown]
  - Idiosyncratic drug reaction [Unknown]
  - Nausea [Unknown]
  - Injection site pain [Unknown]
  - Dizziness [Unknown]
  - Abdominal pain upper [Unknown]
  - Swelling face [Unknown]

NARRATIVE: CASE EVENT DATE: 2020
